FAERS Safety Report 15335208 (Version 1)
Quarter: 2018Q3

REPORT INFORMATION
  Report Type: Spontaneous
  Country: US (occurrence: US)
  Receive Date: 20180830
  Receipt Date: 20180830
  Transmission Date: 20181010
  Serious: Yes (Hospitalization)
  Sender: FDA-Public Use
  Company Number: US-VIFOR (INTERNATIONAL) INC.-VIT-2018-08440

PATIENT
  Sex: Female

DRUGS (27)
  1. VELTASSA [Suspect]
     Active Substance: PATIROMER
     Indication: END STAGE RENAL DISEASE
  2. VELTASSA [Suspect]
     Active Substance: PATIROMER
     Indication: DIABETIC NEUROPATHY
  3. PROCTOFOAM HC [Concomitant]
     Active Substance: HYDROCORTISONE ACETATE\PRAMOXINE HYDROCHLORIDE
  4. TESSALON [Concomitant]
     Active Substance: BENZONATATE
  5. DEPAKOTE [Concomitant]
     Active Substance: DIVALPROEX SODIUM
  6. NORCO [Concomitant]
     Active Substance: ACETAMINOPHEN\HYDROCODONE BITARTRATE
  7. VELTASSA [Suspect]
     Active Substance: PATIROMER
     Indication: HYPERKALAEMIA
     Route: 048
     Dates: start: 20170926
  8. RENVELA [Concomitant]
     Active Substance: SEVELAMER CARBONATE
  9. SENSIPAR [Concomitant]
     Active Substance: CINACALCET HYDROCHLORIDE
  10. ASPIRIN CHILDREN [Concomitant]
     Active Substance: ASPIRIN
  11. REMERON [Concomitant]
     Active Substance: MIRTAZAPINE
  12. MILK OF MAGNESIA [Concomitant]
     Active Substance: MAGNESIUM HYDROXIDE
  13. VOLTAREN [Concomitant]
     Active Substance: DICLOFENAC SODIUM
  14. LEFLUNOMIDE. [Concomitant]
     Active Substance: LEFLUNOMIDE
  15. PERPHENAZINE. [Concomitant]
     Active Substance: PERPHENAZINE
  16. ONDANSETRON HCL [Concomitant]
     Active Substance: ONDANSETRON HYDROCHLORIDE
  17. SYSTANE CONTACTS [Concomitant]
     Active Substance: DEXTRAN\HYPROMELLOSES
  18. MIDODRINE HCL [Concomitant]
     Active Substance: MIDODRINE HYDROCHLORIDE
  19. ARTIFICIAL TEARS [Concomitant]
     Active Substance: GLYCERIN\HYPROMELLOSES\POLYETHYLENE GLYCOL 400
  20. NEURONTIN [Concomitant]
     Active Substance: GABAPENTIN
  21. PREDNISONE. [Concomitant]
     Active Substance: PREDNISONE
  22. VELTASSA [Suspect]
     Active Substance: PATIROMER
     Indication: TYPE 2 DIABETES MELLITUS
  23. TYLENOL [Concomitant]
     Active Substance: ACETAMINOPHEN
  24. XANAX [Concomitant]
     Active Substance: ALPRAZOLAM
  25. SYNTHROID [Concomitant]
     Active Substance: LEVOTHYROXINE SODIUM
  26. DULOXETINE HCL [Concomitant]
     Active Substance: DULOXETINE HYDROCHLORIDE
  27. CLARITIN [Concomitant]
     Active Substance: LORATADINE

REACTIONS (1)
  - Hospitalisation [Unknown]
